FAERS Safety Report 8394084-6 (Version None)
Quarter: 2012Q2

REPORT INFORMATION
  Report Type: 
  Country: None (occurrence: None)
  Receive Date: 20120530
  Receipt Date: 20120519
  Transmission Date: 20120825
  Serious: Yes (Other)
  Sender: FDA-Public Use
  Company Number: CA-JNJFOC-20120516913

PATIENT
  Sex: Male
  Weight: 75 kg

DRUGS (8)
  1. REMICADE [Suspect]
     Indication: CROHN'S DISEASE
     Route: 042
  2. PECTASOL [Concomitant]
     Route: 065
  3. MOTILIUM [Concomitant]
     Route: 065
  4. CIPROFLOXACIN HCL [Concomitant]
     Route: 065
  5. IMURAN [Concomitant]
     Route: 065
  6. FLAGYL [Concomitant]
     Route: 065
  7. COD LIVER [Concomitant]
     Route: 065
  8. CORTISONE ACETATE [Concomitant]
     Route: 065

REACTIONS (2)
  - ABSCESS DRAINAGE [None]
  - PYREXIA [None]
